FAERS Safety Report 8018689-7 (Version None)
Quarter: 2012Q1

REPORT INFORMATION
  Report Type: 
  Country: None (occurrence: None)
  Receive Date: 20120103
  Receipt Date: 20120103
  Transmission Date: 20120608
  Serious: No
  Sender: FDA-Public Use
  Company Number: None

PATIENT
  Age: 52 Year
  Sex: Female
  Weight: 57.152 kg

DRUGS (2)
  1. AZITHROMYCIN [Suspect]
     Indication: PHARYNGITIS
     Dosage: 2 TAB ONDAY1/ 1 TAB DAY 2-5
     Route: 048
     Dates: start: 20111229, end: 20111229
  2. AZITHROMYCIN [Concomitant]

REACTIONS (5)
  - EAR PAIN [None]
  - PHARYNGEAL OEDEMA [None]
  - LIP SWELLING [None]
  - COUGH [None]
  - ODYNOPHAGIA [None]
